FAERS Safety Report 21515973 (Version 1)
Quarter: 2022Q4

REPORT INFORMATION
  Report Type: Report from Study
  Country: US (occurrence: US)
  Receive Date: 20221027
  Receipt Date: 20221027
  Transmission Date: 20230113
  Serious: No
  Sender: FDA-Public Use
  Company Number: US-ABBVIE-4176080

PATIENT
  Sex: Female

DRUGS (2)
  1. IMBRUVICA [Suspect]
     Active Substance: IBRUTINIB
     Indication: Chronic lymphocytic leukaemia
     Dosage: 140 MILLIGRAM?FORM STRENGTH- 140 MILLIGRAM
     Route: 048
     Dates: start: 201203
  2. ACYCLOVIR [Concomitant]
     Active Substance: ACYCLOVIR
     Indication: Product used for unknown indication

REACTIONS (5)
  - Nail disorder [Unknown]
  - Hair texture abnormal [Not Recovered/Not Resolved]
  - Stomatitis [Unknown]
  - Diarrhoea [Unknown]
  - Abdominal pain [Unknown]
